FAERS Safety Report 7216017-8 (Version None)
Quarter: 2011Q1

REPORT INFORMATION
  Report Type: 
  Country: None (occurrence: None)
  Receive Date: 20110104
  Receipt Date: 20110104
  Transmission Date: 20110831
  Serious: Yes (Other)
  Sender: FDA-Public Use
  Company Number: None

PATIENT
  Sex: Female
  Weight: 55.7924 kg

DRUGS (1)
  1. YAZ [Suspect]
     Indication: CONTRACEPTION
     Dosage: 1 PER DAY PO
     Route: 048
     Dates: start: 20070730, end: 20100829

REACTIONS (5)
  - CHEST PAIN [None]
  - VULVOVAGINAL DRYNESS [None]
  - MOOD SWINGS [None]
  - ANGER [None]
  - HYPERTENSION [None]
